FAERS Safety Report 14419504 (Version 1)
Quarter: 2018Q1

REPORT INFORMATION
  Report Type: Spontaneous
  Country: US (occurrence: US)
  Receive Date: 20180122
  Receipt Date: 20180122
  Transmission Date: 20180509
  Serious: No
  Sender: FDA-Public Use
  Company Number: US-MYLANLABS-2018M1002694

PATIENT
  Age: 31 Year
  Sex: Male
  Weight: 82 kg

DRUGS (1)
  1. TEMAZEPAM CAPSULES USP [Suspect]
     Active Substance: TEMAZEPAM
     Indication: SLEEP DISORDER
     Dosage: 30 MG, AT NIGHT
     Route: 048

REACTIONS (5)
  - Mania [Not Recovered/Not Resolved]
  - Drug ineffective [Not Recovered/Not Resolved]
  - Panic attack [Not Recovered/Not Resolved]
  - Nervousness [Not Recovered/Not Resolved]
  - Insomnia [Not Recovered/Not Resolved]

NARRATIVE: CASE EVENT DATE: 20171221
